FAERS Safety Report 4510149-0 (Version None)
Quarter: 2004Q4

REPORT INFORMATION
  Report Type: 
  Country: None (occurrence: None)
  Receive Date: 20041119
  Receipt Date: 20041108
  Transmission Date: 20050328
  Serious: No
  Sender: FDA-Public Use
  Company Number: DE-SHR-03-014921

PATIENT
  Age: 57 Year
  Sex: Female
  Weight: 95 kg

DRUGS (5)
  1. BETAFERON (INTERFERON BETA - 1B) INJECTION [Suspect]
     Indication: MULTIPLE SCLEROSIS
     Dosage: 8 MIU, SUBCUTANEOUS
     Route: 058
     Dates: start: 20020913, end: 20031106
  2. AZATHIOPRINE SODIUM [Suspect]
     Indication: MULTIPLE SCLEROSIS
     Dosage: SEE IMAGE
     Route: 048
     Dates: start: 19990101, end: 20020801
  3. AZATHIOPRINE SODIUM [Suspect]
     Indication: MULTIPLE SCLEROSIS
     Dosage: SEE IMAGE
     Route: 048
     Dates: start: 20031201
  4. FUROSEMIDE [Concomitant]
  5. KELTICAN N (URIDINE TRIPHOSPHATE SODIUM) [Concomitant]

REACTIONS (4)
  - BREAST CANCER FEMALE [None]
  - HYPERTROPHY BREAST [None]
  - MULTIPLE SCLEROSIS RELAPSE [None]
  - WEIGHT INCREASED [None]
